FAERS Safety Report 25133029 (Version 1)
Quarter: 2025Q1

REPORT INFORMATION
  Report Type: Spontaneous
  Country: US (occurrence: US)
  Receive Date: 20250328
  Receipt Date: 20250328
  Transmission Date: 20250408
  Serious: No
  Sender: AMNEAL
  Company Number: US-AMNEAL PHARMACEUTICALS-2024-AMRX-00953

PATIENT
  Age: 54 Year
  Sex: Female
  Weight: 58.05 kg

DRUGS (3)
  1. ESTRADIOL TRANSDERMAL SYSTEM [Suspect]
     Active Substance: ESTRADIOL
     Indication: Hot flush
     Route: 062
     Dates: start: 20240223
  2. PROGESTERONE [Concomitant]
     Active Substance: PROGESTERONE
     Indication: Product used for unknown indication
     Dosage: 100 MG
     Route: 048
     Dates: start: 202310
  3. NALTREXONE [Concomitant]
     Active Substance: NALTREXONE
     Indication: Product used for unknown indication
     Dosage: 3 MG; 1 CAPSULES, 1 /DAY
     Route: 048
     Dates: start: 202207

REACTIONS (2)
  - Drug ineffective [Unknown]
  - Atrophic vulvovaginitis [Unknown]

NARRATIVE: CASE EVENT DATE: 20240223
